FAERS Safety Report 19960975 (Version 27)
Quarter: 2022Q4

REPORT INFORMATION
  Report Type: Spontaneous
  Country: GB (occurrence: GB)
  Receive Date: 20211016
  Receipt Date: 20221227
  Transmission Date: 20230113
  Serious: Yes (Other)
  Sender: FDA-Public Use
  Company Number: GB-AUROBINDO-AUR-APL-2018-011289

PATIENT
  Age: 73 Year
  Sex: Female
  Weight: 48 kg

DRUGS (76)
  1. BORTEZOMIB [Suspect]
     Active Substance: BORTEZOMIB
     Indication: Plasma cell leukaemia
     Route: 058
     Dates: start: 20171110, end: 20171114
  2. BORTEZOMIB [Suspect]
     Active Substance: BORTEZOMIB
     Route: 065
  3. BORTEZOMIB [Suspect]
     Active Substance: BORTEZOMIB
     Route: 058
     Dates: start: 20171110, end: 20171110
  4. BORTEZOMIB [Suspect]
     Active Substance: BORTEZOMIB
     Route: 058
     Dates: start: 201711, end: 20171107
  5. BORTEZOMIB [Suspect]
     Active Substance: BORTEZOMIB
     Route: 058
     Dates: start: 20171106, end: 20171106
  6. BORTEZOMIB [Suspect]
     Active Substance: BORTEZOMIB
     Route: 058
     Dates: start: 20171103, end: 20171103
  7. BORTEZOMIB [Suspect]
     Active Substance: BORTEZOMIB
     Route: 058
     Dates: start: 20171107, end: 201711
  8. BORTEZOMIB [Suspect]
     Active Substance: BORTEZOMIB
     Route: 058
     Dates: start: 20171110, end: 20171114
  9. SERTRALINE [Suspect]
     Active Substance: SERTRALINE HYDROCHLORIDE
     Indication: Product used for unknown indication
  10. SERTRALINE [Suspect]
     Active Substance: SERTRALINE HYDROCHLORIDE
     Route: 041
  11. SERTRALINE [Suspect]
     Active Substance: SERTRALINE HYDROCHLORIDE
     Route: 065
  12. SERTRALINE [Suspect]
     Active Substance: SERTRALINE HYDROCHLORIDE
  13. ALLOPURINOL [Suspect]
     Active Substance: ALLOPURINOL
     Indication: Product used for unknown indication
     Route: 065
     Dates: start: 20171104, end: 20171120
  14. ALLOPURINOL [Suspect]
     Active Substance: ALLOPURINOL
     Route: 065
     Dates: start: 20171120
  15. ALLOPURINOL [Suspect]
     Active Substance: ALLOPURINOL
     Route: 065
  16. ALLOPURINOL [Suspect]
     Active Substance: ALLOPURINOL
     Route: 065
  17. ALLOPURINOL [Suspect]
     Active Substance: ALLOPURINOL
     Dosage: MEDICATION ERROR, MISUSE, ABUSE, OFF LABEL USE
     Route: 065
  18. ALLOPURINOL [Suspect]
     Active Substance: ALLOPURINOL
     Dosage: UNSPECIFIED 16 DAYS
     Route: 065
     Dates: start: 20171120
  19. ALLOPURINOL [Suspect]
     Active Substance: ALLOPURINOL
     Dosage: 16 DAYS MEDICATION ERROR , MISUSE, ABUSE, OFF LABEL USE
     Route: 065
     Dates: start: 20171104, end: 20171120
  20. ALLOPURINOL [Suspect]
     Active Substance: ALLOPURINOL
     Route: 065
     Dates: start: 20171104
  21. DEXAMETHASONE [Suspect]
     Active Substance: DEXAMETHASONE
     Indication: Plasma cell leukaemia
     Dates: start: 20171102, end: 20171106
  22. DEXAMETHASONE [Suspect]
     Active Substance: DEXAMETHASONE
     Indication: Product used for unknown indication
     Route: 065
  23. DEXAMETHASONE [Suspect]
     Active Substance: DEXAMETHASONE
     Dates: start: 20171102, end: 20171106
  24. DEXAMETHASONE [Suspect]
     Active Substance: DEXAMETHASONE
     Route: 065
  25. FENTANYL [Suspect]
     Active Substance: FENTANYL
     Indication: Product used for unknown indication
     Route: 062
     Dates: start: 20171108
  26. FENTANYL [Suspect]
     Active Substance: FENTANYL
     Route: 065
  27. FENTANYL [Suspect]
     Active Substance: FENTANYL
     Route: 062
     Dates: start: 20171108
  28. FENTANYL [Suspect]
     Active Substance: FENTANYL
     Route: 055
     Dates: start: 20171108
  29. FENTANYL [Suspect]
     Active Substance: FENTANYL
     Route: 062
     Dates: start: 20171108
  30. MELPHALAN [Suspect]
     Active Substance: MELPHALAN
     Indication: Plasma cell leukaemia
     Route: 065
  31. MELPHALAN [Suspect]
     Active Substance: MELPHALAN
     Dates: start: 20171107, end: 20171110
  32. MELPHALAN [Suspect]
     Active Substance: MELPHALAN
     Route: 065
     Dates: start: 20171103, end: 20171103
  33. MELPHALAN [Suspect]
     Active Substance: MELPHALAN
     Route: 065
     Dates: start: 20171110, end: 20171114
  34. MELPHALAN [Suspect]
     Active Substance: MELPHALAN
     Dates: start: 20171106, end: 20171106
  35. MELPHALAN [Suspect]
     Active Substance: MELPHALAN
     Route: 065
     Dates: start: 20171103, end: 20171103
  36. MELPHALAN [Suspect]
     Active Substance: MELPHALAN
     Route: 065
     Dates: start: 20171103, end: 20171106
  37. PREDNISONE [Suspect]
     Active Substance: PREDNISONE
     Indication: Plasma cell leukaemia
     Route: 065
     Dates: start: 20171103, end: 20171103
  38. PREDNISONE [Suspect]
     Active Substance: PREDNISONE
     Route: 065
  39. PREDNISONE [Suspect]
     Active Substance: PREDNISONE
     Dosage: 70 MILLIGRAM, QD, 1 CYCLE
     Route: 065
     Dates: start: 20161106, end: 20161106
  40. SODIUM CHLORIDE [Suspect]
     Active Substance: SODIUM CHLORIDE
     Indication: Medication dilution
     Dosage: 1 CYCLE
     Route: 041
     Dates: start: 20171106, end: 20171106
  41. SODIUM CHLORIDE [Suspect]
     Active Substance: SODIUM CHLORIDE
     Route: 065
     Dates: start: 20171103, end: 20171103
  42. SODIUM CHLORIDE [Suspect]
     Active Substance: SODIUM CHLORIDE
     Dosage: UNK
     Route: 041
     Dates: start: 20171110, end: 20171114
  43. SODIUM CHLORIDE [Suspect]
     Active Substance: SODIUM CHLORIDE
     Dosage: 1 CYCLE
     Route: 041
     Dates: start: 20171103, end: 20171106
  44. SODIUM CHLORIDE [Suspect]
     Active Substance: SODIUM CHLORIDE
     Dosage: UNK
     Route: 041
     Dates: start: 20171107, end: 201711
  45. VELCADE [Suspect]
     Active Substance: BORTEZOMIB
     Indication: Plasma cell leukaemia
     Route: 058
     Dates: start: 20171110, end: 20171110
  46. VELCADE [Suspect]
     Active Substance: BORTEZOMIB
     Route: 058
  47. VELCADE [Suspect]
     Active Substance: BORTEZOMIB
     Dosage: 1.8 MG
     Route: 058
     Dates: start: 20171103, end: 20171103
  48. VELCADE [Suspect]
     Active Substance: BORTEZOMIB
     Route: 058
     Dates: start: 20171106, end: 20171106
  49. VELCADE [Suspect]
     Active Substance: BORTEZOMIB
     Route: 058
     Dates: start: 20171110, end: 20171114
  50. VELCADE [Suspect]
     Active Substance: BORTEZOMIB
     Route: 058
     Dates: start: 20171107, end: 201711
  51. VELCADE [Suspect]
     Active Substance: BORTEZOMIB
     Route: 058
     Dates: start: 20171103, end: 20171103
  52. BENDROFLUMETHIAZIDE [Suspect]
     Active Substance: BENDROFLUMETHIAZIDE
     Indication: Product used for unknown indication
     Route: 065
  53. BENDROFLUMETHIAZIDE [Suspect]
     Active Substance: BENDROFLUMETHIAZIDE
     Dates: start: 20171103, end: 20171103
  54. BENDROFLUMETHIAZIDE [Suspect]
     Active Substance: BENDROFLUMETHIAZIDE
     Route: 065
  55. BENDROFLUMETHIAZIDE [Suspect]
     Active Substance: BENDROFLUMETHIAZIDE
  56. BENDROFLUMETHIAZIDE [Suspect]
     Active Substance: BENDROFLUMETHIAZIDE
     Dates: start: 20171110, end: 20171114
  57. BENDROFLUMETHIAZIDE [Suspect]
     Active Substance: BENDROFLUMETHIAZIDE
     Route: 065
  58. RAMIPRIL [Suspect]
     Active Substance: RAMIPRIL
     Indication: Product used for unknown indication
     Route: 065
  59. RAMIPRIL [Suspect]
     Active Substance: RAMIPRIL
     Dosage: 10 MG, QD ONCE A DAY UNSPESIFIED DOSAGE FORM
     Route: 048
  60. METOCLOPRAMIDE [Suspect]
     Active Substance: METOCLOPRAMIDE
     Indication: Product used for unknown indication
     Dosage: AS NECESSARY/ MEDICATION ERROR, MISUSE, ABUSE, OFF LABEL USE
     Route: 065
  61. METOCLOPRAMIDE [Suspect]
     Active Substance: METOCLOPRAMIDE
  62. METOCLOPRAMIDE [Suspect]
     Active Substance: METOCLOPRAMIDE
     Dosage: AS NECESSARY
     Route: 065
  63. OMEPRAZOLE [Suspect]
     Active Substance: OMEPRAZOLE
     Indication: Product used for unknown indication
     Route: 048
  64. OMEPRAZOLE [Suspect]
     Active Substance: OMEPRAZOLE
  65. OMEPRAZOLE [Suspect]
     Active Substance: OMEPRAZOLE
     Route: 048
  66. PEMETREXED [Suspect]
     Active Substance: PEMETREXED
     Indication: Medication dilution
     Route: 041
     Dates: start: 20171103
  67. FENTANYL [Suspect]
     Active Substance: FENTANYL
     Indication: Product used for unknown indication
     Route: 062
     Dates: start: 20171108
  68. FENTANYL [Suspect]
     Active Substance: FENTANYL
     Route: 062
     Dates: start: 20171108
  69. FENTANYL [Suspect]
     Active Substance: FENTANYL
     Route: 055
     Dates: start: 20171108
  70. SERTRALINE [Concomitant]
     Active Substance: SERTRALINE HYDROCHLORIDE
     Indication: Product used for unknown indication
  71. OMEPRAZOLE [Concomitant]
     Active Substance: OMEPRAZOLE
     Indication: Product used for unknown indication
  72. OMEPRAZOLE [Concomitant]
     Active Substance: OMEPRAZOLE
  73. BENDROFLUMETHIAZIDE [Concomitant]
     Active Substance: BENDROFLUMETHIAZIDE
     Indication: Product used for unknown indication
     Route: 065
  74. RAMIPRIL [Concomitant]
     Active Substance: RAMIPRIL
     Indication: Product used for unknown indication
     Dosage: EVERY MORNING
     Route: 065
  75. METOCLOPRAMIDE [Concomitant]
     Active Substance: METOCLOPRAMIDE
     Indication: Product used for unknown indication
  76. METOCLOPRAMIDE [Concomitant]
     Active Substance: METOCLOPRAMIDE

REACTIONS (24)
  - Abnormal behaviour [Recovered/Resolved]
  - Disorientation [Recovered/Resolved]
  - Abnormal behaviour [Not Recovered/Not Resolved]
  - Emotional distress [Not Recovered/Not Resolved]
  - Disorientation [Recovered/Resolved]
  - Emotional distress [Unknown]
  - Disturbance in social behaviour [Recovered/Resolved]
  - Disturbance in social behaviour [Recovered/Resolved]
  - Emotional distress [Not Recovered/Not Resolved]
  - Agitation [Recovered/Resolved]
  - Paranoia [Recovered/Resolved]
  - Paranoia [Recovered/Resolved]
  - Agitation [Recovered/Resolved]
  - Paranoia [Recovered/Resolved]
  - Hallucination [Recovered/Resolved]
  - Confusional state [Recovered/Resolved]
  - Confusional state [Recovered/Resolved]
  - Off label use [Unknown]
  - Off label use [Unknown]
  - Product use in unapproved indication [Unknown]
  - Incorrect route of product administration [Unknown]
  - Intentional product misuse [Unknown]
  - Medication error [Unknown]
  - Drug abuse [Unknown]

NARRATIVE: CASE EVENT DATE: 20171107
